FAERS Safety Report 6358585-4 (Version None)
Quarter: 2009Q3

REPORT INFORMATION
  Report Type: 
  Country: None (occurrence: None)
  Receive Date: 20090916
  Receipt Date: 20090908
  Transmission Date: 20100115
  Serious: Yes (Death, Other)
  Sender: FDA-Public Use
  Company Number: PT-MERCK-0907PRT00007

PATIENT
  Age: 97 Year
  Sex: Male
  Weight: 53 kg

DRUGS (7)
  1. INVANZ [Suspect]
     Indication: CHOLECYSTITIS ACUTE
     Route: 041
     Dates: start: 20090706, end: 20090713
  2. ESOMEPRAZOLE [Concomitant]
     Indication: GASTROINTESTINAL HAEMORRHAGE
     Route: 065
     Dates: start: 20090706
  3. INSULIN, NEUTRAL [Concomitant]
     Indication: HYPERGLYCAEMIA
     Route: 058
     Dates: start: 20090706
  4. ENOXAPARIN SODIUM [Concomitant]
     Indication: THROMBOSIS
     Route: 058
     Dates: start: 20090708
  5. ENOXAPARIN SODIUM [Concomitant]
     Route: 065
     Dates: start: 20090706
  6. CAPTOPRIL COMP [Concomitant]
     Indication: HYPERTENSION
     Route: 060
     Dates: start: 20090706
  7. FUROSEMIDE [Concomitant]
     Indication: POLYURIA
     Route: 042
     Dates: start: 20090708

REACTIONS (2)
  - ACUTE PULMONARY OEDEMA [None]
  - CONVULSION [None]
